FAERS Safety Report 21637912 (Version 1)
Quarter: 2022Q4

REPORT INFORMATION
  Report Type: Spontaneous
  Country: FR (occurrence: FR)
  Receive Date: 20221124
  Receipt Date: 20221124
  Transmission Date: 20230112
  Serious: Yes (Other)
  Sender: FDA-Public Use
  Company Number: None

PATIENT
  Age: 54 Year
  Sex: Female

DRUGS (2)
  1. QUETIAPINE FUMARATE [Suspect]
     Active Substance: QUETIAPINE FUMARATE
     Indication: Depression
     Dosage: 400MG LP 2CP AT EVENING
  2. CLOMIPRAMINE HYDROCHLORIDE [Suspect]
     Active Substance: CLOMIPRAMINE HYDROCHLORIDE
     Indication: Depression
     Dosage: 25 MG FROM 21 / 03 50 MG FROM 06 / 04 75 MG FROM 12 / 04 100 MG FROM 25 /?08
     Dates: start: 20220321

REACTIONS (1)
  - Hepatic cytolysis [Not Recovered/Not Resolved]
